FAERS Safety Report 15523163 (Version 9)
Quarter: 2023Q1

REPORT INFORMATION
  Report Type: Other
  Country: CA (occurrence: CA)
  Receive Date: 20181018
  Receipt Date: 20230102
  Transmission Date: 20230418
  Serious: Yes (Other)
  Sender: FDA-Public Use
  Company Number: CA-002147023-PHHY2015CA070697

PATIENT
  Age: 26 Year
  Sex: Female

DRUGS (23)
  1. XOLAIR [Suspect]
     Active Substance: OMALIZUMAB
     Indication: Chronic spontaneous urticaria
     Route: 058
     Dates: start: 20150416
  2. XOLAIR [Suspect]
     Active Substance: OMALIZUMAB
     Indication: Anaphylactic reaction
     Route: 058
     Dates: start: 20160301
  3. XOLAIR [Suspect]
     Active Substance: OMALIZUMAB
     Route: 058
  4. XOLAIR [Suspect]
     Active Substance: OMALIZUMAB
     Route: 058
     Dates: start: 20160329
  5. XOLAIR [Suspect]
     Active Substance: OMALIZUMAB
     Route: 058
     Dates: start: 20160426
  6. XOLAIR [Suspect]
     Active Substance: OMALIZUMAB
     Route: 058
     Dates: start: 20161110
  7. XOLAIR [Suspect]
     Active Substance: OMALIZUMAB
     Route: 058
     Dates: start: 20170406
  8. XOLAIR [Suspect]
     Active Substance: OMALIZUMAB
     Route: 058
     Dates: start: 20170509
  9. XOLAIR [Suspect]
     Active Substance: OMALIZUMAB
     Route: 058
     Dates: start: 20170920
  10. XOLAIR [Suspect]
     Active Substance: OMALIZUMAB
     Route: 058
     Dates: start: 201710
  11. XOLAIR [Suspect]
     Active Substance: OMALIZUMAB
     Route: 058
     Dates: start: 20171229
  12. XOLAIR [Suspect]
     Active Substance: OMALIZUMAB
     Route: 058
     Dates: start: 20180712
  13. XOLAIR [Suspect]
     Active Substance: OMALIZUMAB
     Route: 058
     Dates: start: 20180810
  14. XOLAIR [Suspect]
     Active Substance: OMALIZUMAB
     Route: 058
     Dates: start: 20180907
  15. XOLAIR [Suspect]
     Active Substance: OMALIZUMAB
     Route: 058
     Dates: start: 20181009
  16. XOLAIR [Suspect]
     Active Substance: OMALIZUMAB
     Route: 058
     Dates: start: 20181106
  17. XOLAIR [Suspect]
     Active Substance: OMALIZUMAB
     Route: 058
     Dates: start: 20190103
  18. XOLAIR [Suspect]
     Active Substance: OMALIZUMAB
     Route: 058
     Dates: start: 20190208
  19. XOLAIR [Suspect]
     Active Substance: OMALIZUMAB
     Route: 058
     Dates: start: 20191218
  20. XOLAIR [Suspect]
     Active Substance: OMALIZUMAB
     Route: 058
     Dates: start: 20200108
  21. XOLAIR [Suspect]
     Active Substance: OMALIZUMAB
     Route: 058
     Dates: start: 20150417
  22. XOLAIR [Suspect]
     Active Substance: OMALIZUMAB
     Route: 058
     Dates: start: 20211226
  23. EBASTINE [Concomitant]
     Active Substance: EBASTINE
     Indication: Product used for unknown indication
     Dosage: (10 DAY COURSE)
     Route: 065

REACTIONS (47)
  - Pyrexia [Recovered/Resolved]
  - Paraesthesia oral [Unknown]
  - Inappropriate schedule of product administration [Unknown]
  - Fall [Unknown]
  - Vomiting [Recovering/Resolving]
  - Joint dislocation [Unknown]
  - Blood bicarbonate decreased [Unknown]
  - Cold urticaria [Recovered/Resolved]
  - Infection [Unknown]
  - Sepsis [Recovering/Resolving]
  - Joint stiffness [Unknown]
  - Joint swelling [Recovering/Resolving]
  - Feeling hot [Unknown]
  - Pain [Unknown]
  - Gastroenteritis viral [Unknown]
  - Oropharyngeal pain [Unknown]
  - Urinary tract infection [Recovering/Resolving]
  - Hypotension [Recovering/Resolving]
  - Abdominal discomfort [Recovering/Resolving]
  - Blood potassium decreased [Unknown]
  - Neutrophil count increased [Unknown]
  - Blood calcium decreased [Unknown]
  - Blood bilirubin increased [Unknown]
  - Blood lactic acid increased [Recovering/Resolving]
  - Pyelonephritis [Recovering/Resolving]
  - Blood pH decreased [Unknown]
  - Lymphocyte count decreased [Recovering/Resolving]
  - Arthritis [Not Recovered/Not Resolved]
  - Eye swelling [Recovered/Resolved]
  - Pharyngeal swelling [Recovered/Resolved]
  - Dyspnoea exertional [Recovered/Resolved]
  - Dyspnoea [Recovering/Resolving]
  - C-reactive protein increased [Unknown]
  - Nausea [Unknown]
  - Mouth swelling [Recovering/Resolving]
  - Tachycardia [Recovering/Resolving]
  - Influenza [Unknown]
  - Urticaria [Not Recovered/Not Resolved]
  - Therapeutic response shortened [Unknown]
  - Nasopharyngitis [Not Recovered/Not Resolved]
  - Temperature intolerance [Unknown]
  - Anaphylactic reaction [Unknown]
  - Lymphadenopathy [Unknown]
  - Syncope [Unknown]
  - Arrhythmia [Unknown]
  - Illness [Unknown]
  - Ear swelling [Unknown]

NARRATIVE: CASE EVENT DATE: 20150607
